FAERS Safety Report 24986670 (Version 3)
Quarter: 2025Q1

REPORT INFORMATION
  Report Type: Report from Study
  Country: CN (occurrence: CN)
  Receive Date: 20250219
  Receipt Date: 20250311
  Transmission Date: 20250409
  Serious: Yes (Hospitalization)
  Sender: EISAI
  Company Number: CN-Eisai-EC-2025-184126

PATIENT
  Age: 52 Year
  Sex: Female
  Weight: 43 kg

DRUGS (11)
  1. ERIBULIN [Suspect]
     Active Substance: ERIBULIN
     Indication: Breast cancer
     Dates: start: 20250117, end: 20250207
  2. CAPECITABINE [Suspect]
     Active Substance: CAPECITABINE
     Indication: Breast cancer
     Dosage: D1-D14/Q3W
     Dates: start: 20250117, end: 20250130
  3. CAPECITABINE [Suspect]
     Active Substance: CAPECITABINE
     Dosage: D1-D14/Q3W
     Dates: start: 20250207, end: 20250211
  4. ROSUVASTATIN CALCIUM [Concomitant]
     Active Substance: ROSUVASTATIN CALCIUM
     Indication: Lipids increased
     Dates: start: 2023
  5. BICYCLOL [Concomitant]
     Active Substance: BICYCLOL
     Indication: Hepatobiliary disorder prophylaxis
     Dates: start: 20241214
  6. PIOGLITAZONE HYDROCHLORIDE AND METFORMIN HYDROCHLORIDE [Concomitant]
     Active Substance: METFORMIN HYDROCHLORIDE\PIOGLITAZONE HYDROCHLORIDE
     Indication: Blood glucose increased
     Dates: start: 20250110, end: 20250212
  7. INSULIN DEGLUDEC [Concomitant]
     Active Substance: INSULIN DEGLUDEC
     Indication: Blood glucose increased
     Dosage: 18-20 UNITS
     Dates: start: 20250111, end: 20250211
  8. INSULIN ASPART [Concomitant]
     Active Substance: INSULIN ASPART
     Indication: Blood glucose increased
     Dosage: 18-20 UNITS
     Dates: start: 20250111, end: 20250211
  9. ACARBOSE [Concomitant]
     Active Substance: ACARBOSE
     Indication: Blood glucose increased
     Dates: start: 20250118, end: 20250211
  10. METHYLPREDNISOLONE [Concomitant]
     Active Substance: METHYLPREDNISOLONE
     Indication: Interstitial lung disease
     Dates: start: 20250123, end: 20250208
  11. INSULIN HUMAN [Concomitant]
     Active Substance: INSULIN HUMAN
     Indication: Blood glucose increased
     Dates: start: 20250125, end: 20250125

REACTIONS (1)
  - Pneumonitis [Recovering/Resolving]

NARRATIVE: CASE EVENT DATE: 20250208
